FAERS Safety Report 9821257 (Version 1)
Quarter: 2014Q1

REPORT INFORMATION
  Report Type: Spontaneous
  Country: US (occurrence: None)
  Receive Date: 20140115
  Receipt Date: 20140115
  Transmission Date: 20141002
  Serious: No
  Sender: FDA-Public Use
  Company Number: None

PATIENT
  Age: 38 Year
  Sex: Female
  Weight: 79.38 kg

DRUGS (1)
  1. HYDROCONDONE [Suspect]
     Indication: PAIN
     Dosage: 1 TAB 3 TIMES A DAY THREE TIMES DAILY TAKEN BY MOUTH
     Route: 048
     Dates: start: 20131213, end: 20140113

REACTIONS (2)
  - Product quality issue [None]
  - Drug effect decreased [None]
